FAERS Safety Report 10465908 (Version 1)
Quarter: 2014Q3

REPORT INFORMATION
  Report Type: Not Available
  Country: US (occurrence: US)
  Receive Date: 20140922
  Receipt Date: 20140922
  Transmission Date: 20150326
  Serious: No
  Sender: FDA-Public Use
  Company Number: US-LUPIN PHARMACEUTICALS INC.-E2B_00001639

PATIENT
  Age: 71 Year
  Sex: Female
  Weight: 89.89 kg

DRUGS (3)
  1. PEPCID [Concomitant]
     Active Substance: FAMOTIDINE
     Indication: HYPERCHLORHYDRIA
  2. CEFUROXIME AXETIL. [Suspect]
     Active Substance: CEFUROXIME AXETIL
     Indication: CYSTITIS
     Dates: start: 20140113, end: 20140114
  3. INDERAL [Concomitant]
     Active Substance: PROPRANOLOL HYDROCHLORIDE
     Indication: HEART RATE IRREGULAR

REACTIONS (4)
  - Flushing [Recovered/Resolved]
  - Palpitations [Recovered/Resolved]
  - Abdominal pain [Not Recovered/Not Resolved]
  - Product solubility abnormal [Unknown]

NARRATIVE: CASE EVENT DATE: 20140113
